FAERS Safety Report 20064272 (Version 1)
Quarter: 2021Q4

REPORT INFORMATION
  Report Type: Spontaneous
  Country: US (occurrence: US)
  Receive Date: 20211112
  Receipt Date: 20211112
  Transmission Date: 20220303
  Serious: Yes (Other)
  Sender: FDA-Public Use
  Company Number: US-DSPHARMA-2021SUN004316

PATIENT
  Sex: Female

DRUGS (1)
  1. LATUDA [Suspect]
     Active Substance: LURASIDONE HYDROCHLORIDE
     Indication: Bipolar disorder
     Dosage: 60 MG
     Route: 048

REACTIONS (4)
  - Dystonia [Unknown]
  - Tongue movement disturbance [Recovered/Resolved]
  - Anxiety [Unknown]
  - Extrapyramidal disorder [Unknown]
